FAERS Safety Report 5510551-4 (Version None)
Quarter: 2007Q4

REPORT INFORMATION
  Report Type: 
  Country: None (occurrence: None)
  Receive Date: 20071108
  Receipt Date: 20071025
  Transmission Date: 20080405
  Serious: Yes (Other)
  Sender: FDA-Public Use
  Company Number: GB-ELI_LILLY_AND_COMPANY-GB200710006488

PATIENT
  Age: 40 Year
  Sex: Male

DRUGS (5)
  1. BYETTA [Suspect]
     Dosage: 5 UG, UNKNOWN
     Route: 065
     Dates: start: 20070901, end: 20071001
  2. BYETTA [Suspect]
     Dosage: 10 UG, UNKNOWN
     Route: 065
     Dates: start: 20071001
  3. METFORMIN HCL [Concomitant]
     Dosage: UNK, UNKNOWN
     Route: 065
  4. GLICLAZIDE [Concomitant]
     Dosage: UNK, UNKNOWN
     Route: 065
  5. PIOGLITAZONE [Concomitant]
     Dosage: UNK, UNKNOWN
     Route: 065
     Dates: end: 20070901

REACTIONS (1)
  - STEVENS-JOHNSON SYNDROME [None]
